FAERS Safety Report 4317099-3 (Version None)
Quarter: 2004Q1

REPORT INFORMATION
  Report Type: 
  Country: None (occurrence: None)
  Receive Date: 20040312
  Receipt Date: 20040304
  Transmission Date: 20041129
  Serious: Yes (Hospitalization)
  Sender: FDA-Public Use
  Company Number: 2004200596JP

PATIENT
  Age: 40 Year
  Sex: Female
  Weight: 47 kg

DRUGS (3)
  1. SULFASALAZINE [Suspect]
     Indication: COLITIS ULCERATIVE
     Dosage: SEE IMAGE
     Route: 048
     Dates: start: 20020723, end: 20021001
  2. SULFASALAZINE [Suspect]
     Indication: COLITIS ULCERATIVE
     Dosage: SEE IMAGE
     Route: 048
     Dates: start: 20021002, end: 20040213
  3. MIYA BM [Concomitant]

REACTIONS (4)
  - ANAEMIA HAEMOLYTIC AUTOIMMUNE [None]
  - BLOOD LACTATE DEHYDROGENASE ABNORMAL [None]
  - DYSPNOEA [None]
  - OEDEMA PERIPHERAL [None]
